FAERS Safety Report 16697456 (Version 1)
Quarter: 2019Q3

REPORT INFORMATION
  Report Type: Spontaneous
  Country: CZ (occurrence: CZ)
  Receive Date: 20190813
  Receipt Date: 20190813
  Transmission Date: 20191004
  Serious: Yes (Life-Threatening, Hospitalization)
  Sender: FDA-Public Use
  Company Number: CZ-ASTRAZENECA-2019SF13788

PATIENT
  Sex: Female

DRUGS (7)
  1. PREDUCTAL [Concomitant]
     Active Substance: TRIMETAZIDINE DIHYDROCHLORIDE
  2. BRILIQUE [Concomitant]
     Active Substance: TICAGRELOR
     Dosage: DOSAGE 2X90MG
     Route: 048
  3. EZETIMIBE. [Concomitant]
     Active Substance: EZETIMIBE
  4. GODASAL [Concomitant]
     Active Substance: ASPIRIN\GLYCINE
  5. ROSUCARD [Suspect]
     Active Substance: ROSUVASTATIN CALCIUM
     Indication: MYOCARDIAL ISCHAEMIA
     Route: 048
  6. METFORMIN [Concomitant]
     Active Substance: METFORMIN HYDROCHLORIDE
  7. ROSUCARD [Suspect]
     Active Substance: ROSUVASTATIN CALCIUM
     Indication: ACUTE MYOCARDIAL INFARCTION
     Route: 048

REACTIONS (4)
  - Myalgia [Recovered/Resolved]
  - Rhabdomyolysis [Recovered/Resolved]
  - Decreased appetite [Recovered/Resolved]
  - Asthenia [Recovered/Resolved]

NARRATIVE: CASE EVENT DATE: 20190708
